FAERS Safety Report 13108049 (Version 3)
Quarter: 2017Q3

REPORT INFORMATION
  Report Type: Spontaneous
  Country: US (occurrence: US)
  Receive Date: 20170112
  Receipt Date: 20170807
  Transmission Date: 20171127
  Serious: No
  Sender: FDA-Public Use
  Company Number: US-PFIZER INC-2017010504

PATIENT
  Age: 67 Year
  Sex: Female

DRUGS (8)
  1. SUTENT [Suspect]
     Active Substance: SUNITINIB MALATE
     Dosage: 37.5 MG, CYCLIC, (1 CAPSULE FOR 14 DAYS, THEN 7 DAYS OFF, THEN REPEAT)
     Route: 048
     Dates: start: 20170106
  2. AMBIEN [Concomitant]
     Active Substance: ZOLPIDEM TARTRATE
     Dosage: 10 MG, UNK
  3. SUTENT [Suspect]
     Active Substance: SUNITINIB MALATE
     Dosage: 37.5 MG, CYCLIC, (EVERY DAY FOR 14 DAYS, THEN 7 DAYS OFF)
     Route: 048
     Dates: start: 20170106
  4. IMODIUM MULTI-SYMPTOM RELIEF [Concomitant]
     Active Substance: DIMETHICONE\LOPERAMIDE HYDROCHLORIDE
     Dosage: UNK (LOPERAMIDE HYDROCHLORIDE: 2, SIMETICONE:125 MG)
  5. METOPROLOL TARTRATE. [Concomitant]
     Active Substance: METOPROLOL TARTRATE
     Dosage: 100 MG, 2X/DAY
  6. SUTENT [Suspect]
     Active Substance: SUNITINIB MALATE
     Indication: RENAL CANCER
     Dosage: 37.5 MG, CYCLIC, (1 CAPSULE FOR 14 DAYS, THEN 7 DAYS OFF, THEN REPEAT)
     Route: 048
     Dates: start: 20160109
  7. HYDROCHLOROTHIAZIDE. [Concomitant]
     Active Substance: HYDROCHLOROTHIAZIDE
     Dosage: 25 MG, UNK
  8. LOSARTAN POTASSIUM. [Concomitant]
     Active Substance: LOSARTAN POTASSIUM
     Dosage: 100 MG, UNK

REACTIONS (7)
  - Fatigue [Recovered/Resolved]
  - Insomnia [Not Recovered/Not Resolved]
  - Dyspepsia [Recovered/Resolved]
  - Gingival pain [Not Recovered/Not Resolved]
  - Hyperkeratosis [Not Recovered/Not Resolved]
  - Diarrhoea [Not Recovered/Not Resolved]
  - Dry skin [Not Recovered/Not Resolved]
